FAERS Safety Report 10007197 (Version 2)
Quarter: 2014Q2

REPORT INFORMATION
  Report Type: Spontaneous
  Country: US (occurrence: None)
  Receive Date: 20140311
  Receipt Date: 20140401
  Transmission Date: 20141212
  Serious: Yes (Other)
  Sender: FDA-Public Use
  Company Number: 2014AP001410

PATIENT
  Age: 15 Year
  Sex: Female
  Weight: 38 kg

DRUGS (12)
  1. FERRIPROX [Suspect]
     Indication: SIDEROBLASTIC ANAEMIA
     Route: 048
     Dates: start: 20130806, end: 20131218
  2. FERRIPROX [Suspect]
     Indication: HAEMOCHROMATOSIS
     Route: 048
     Dates: start: 20130806, end: 20131218
  3. CARVEDILOL [Concomitant]
  4. LEVEMIR [Concomitant]
  5. HUMALOG [Concomitant]
  6. WARFARIN [Concomitant]
  7. ASA [Concomitant]
  8. VITAMIN D [Concomitant]
  9. TUMS [Concomitant]
  10. PENICILLIN [Concomitant]
  11. FAMOTIDINE [Concomitant]
  12. EXJADE [Concomitant]

REACTIONS (2)
  - Agranulocytosis [None]
  - Influenza [None]
